FAERS Safety Report 8051999-6 (Version None)
Quarter: 2012Q1

REPORT INFORMATION
  Report Type: 
  Country: None (occurrence: None)
  Receive Date: 20120118
  Receipt Date: 20120111
  Transmission Date: 20120608
  Serious: No
  Sender: FDA-Public Use
  Company Number: US-JNJFOC-20120104445

PATIENT
  Sex: Male
  Weight: 140.16 kg

DRUGS (2)
  1. INVEGA [Suspect]
     Indication: DEPRESSION
     Route: 048
  2. INVEGA [Suspect]
     Indication: BIPOLAR DISORDER
     Route: 048

REACTIONS (1)
  - DERMATITIS CONTACT [None]
